FAERS Safety Report 14356837 (Version 2)
Quarter: 2018Q1

REPORT INFORMATION
  Report Type: Spontaneous
  Country: US (occurrence: US)
  Receive Date: 20180105
  Receipt Date: 20180112
  Transmission Date: 20180509
  Serious: Yes (Other)
  Sender: FDA-Public Use
  Company Number: US-TEVA-2017-US-827971

PATIENT
  Age: 74 Year
  Sex: Female

DRUGS (12)
  1. MONTELUKAST [Concomitant]
     Active Substance: MONTELUKAST SODIUM
  2. LEVACETRIZINE [Concomitant]
  3. HYDROXYZINE PAMOATE. [Concomitant]
     Active Substance: HYDROXYZINE PAMOATE
  4. SERTRALINE [Concomitant]
     Active Substance: SERTRALINE HYDROCHLORIDE
  5. MOXIFLOXACIN. [Suspect]
     Active Substance: MOXIFLOXACIN
     Indication: SINUS DISORDER
     Route: 048
     Dates: start: 20161215, end: 20161224
  6. PRAVASTATIN. [Concomitant]
     Active Substance: PRAVASTATIN
  7. FUROSEMIDE. [Concomitant]
     Active Substance: FUROSEMIDE
  8. ASPIRIN. [Concomitant]
     Active Substance: ASPIRIN
  9. ALPRAZOLAM. [Concomitant]
     Active Substance: ALPRAZOLAM
  10. ATENOLOL. [Concomitant]
     Active Substance: ATENOLOL
  11. ZANTAC [Concomitant]
     Active Substance: RANITIDINE HYDROCHLORIDE
     Route: 065
  12. VITAMIN D3 [Concomitant]
     Active Substance: CHOLECALCIFEROL

REACTIONS (14)
  - Rash [Unknown]
  - Urticaria [Unknown]
  - Crying [Unknown]
  - Lip swelling [Not Recovered/Not Resolved]
  - Tendon disorder [Unknown]
  - Musculoskeletal discomfort [Unknown]
  - Pruritus [Unknown]
  - Neck pain [Unknown]
  - Arthralgia [Unknown]
  - Feeling abnormal [Unknown]
  - Erythema [Unknown]
  - Muscle tightness [Unknown]
  - Pruritus [Not Recovered/Not Resolved]
  - Swelling face [Not Recovered/Not Resolved]

NARRATIVE: CASE EVENT DATE: 2016
